FAERS Safety Report 21651761 (Version 1)
Quarter: 2022Q4

REPORT INFORMATION
  Report Type: Spontaneous
  Country: CN (occurrence: CN)
  Receive Date: 20221128
  Receipt Date: 20221128
  Transmission Date: 20230113
  Serious: Yes (Hospitalization)
  Sender: FDA-Public Use
  Company Number: CN-PFIZER INC-PV202200109294

PATIENT
  Age: 28 Year
  Sex: Female
  Weight: 61 kg

DRUGS (2)
  1. CYTARABINE [Suspect]
     Active Substance: CYTARABINE
     Indication: Acute lymphocytic leukaemia
     Dosage: 50 MG, SLOWLY INJECTED INTRATHECALLY
     Route: 037
     Dates: start: 20221104, end: 20221104
  2. CYTARABINE [Suspect]
     Active Substance: CYTARABINE
     Dosage: 3.2 G, Q12H D1-2
     Route: 041
     Dates: start: 20221108, end: 20221109

REACTIONS (4)
  - Myelosuppression [Recovering/Resolving]
  - Liver injury [Recovering/Resolving]
  - Pyrexia [Recovering/Resolving]
  - Haemorrhoids [Unknown]

NARRATIVE: CASE EVENT DATE: 20221115
